FAERS Safety Report 13044245 (Version 1)
Quarter: 2016Q4

REPORT INFORMATION
  Report Type: Spontaneous
  Country: US (occurrence: US)
  Receive Date: 20161220
  Receipt Date: 20161220
  Transmission Date: 20170207
  Serious: Yes (Other)
  Sender: FDA-Public Use
  Company Number: US-ROCHE-1033601

PATIENT
  Age: 70 Year
  Sex: Female
  Weight: 72.64 kg

DRUGS (6)
  1. CLARINEX [Concomitant]
     Active Substance: DESLORATADINE
  2. NASONEX [Concomitant]
     Active Substance: MOMETASONE FUROATE
  3. CALCIUM [Concomitant]
     Active Substance: CALCIUM
     Indication: VITAMIN D
  4. SYNTHROID [Concomitant]
     Active Substance: LEVOTHYROXINE SODIUM
  5. ZELBORAF [Suspect]
     Active Substance: VEMURAFENIB
     Indication: MALIGNANT MELANOMA
     Route: 048
     Dates: start: 20120117, end: 20120125
  6. OMEPRAZOLE. [Concomitant]
     Active Substance: OMEPRAZOLE

REACTIONS (7)
  - Arthralgia [Recovered/Resolved]
  - Myalgia [Unknown]
  - Nausea [Recovered/Resolved]
  - Pyrexia [Recovered/Resolved]
  - Fatigue [Unknown]
  - Rash [Recovered/Resolved]
  - Decreased appetite [Unknown]

NARRATIVE: CASE EVENT DATE: 20120124
